FAERS Safety Report 5415329-8 (Version None)
Quarter: 2007Q3

REPORT INFORMATION
  Report Type: 
  Country: None (occurrence: None)
  Receive Date: 20070813
  Receipt Date: 20070801
  Transmission Date: 20080115
  Serious: Yes (Other)
  Sender: FDA-Public Use
  Company Number: 17164

PATIENT
  Sex: Female

DRUGS (6)
  1. VINCRISTINE [Suspect]
     Indication: NEPHROBLASTOMA
  2. ACTINOMYCIN-D [Suspect]
     Indication: NEPHROBLASTOMA
  3. CYCLOPHOSPHAMIDE [Suspect]
     Indication: NEPHROBLASTOMA
  4. DOXORUBICIN [Suspect]
     Indication: NEPHROBLASTOMA
  5. RADIOTHERAPY [Suspect]
     Indication: NEPHROBLASTOMA
  6. CONTRAST MEDIA [Concomitant]

REACTIONS (1)
  - NODULAR REGENERATIVE HYPERPLASIA [None]
